FAERS Safety Report 13117366 (Version 1)
Quarter: 2017Q1

REPORT INFORMATION
  Report Type: Spontaneous
  Country: BR (occurrence: BR)
  Receive Date: 20170116
  Receipt Date: 20170116
  Transmission Date: 20170428
  Serious: Yes (Other)
  Sender: FDA-Public Use
  Company Number: PHHY2017BR004358

PATIENT
  Sex: Female

DRUGS (1)
  1. DIOVAN HCT [Suspect]
     Active Substance: HYDROCHLOROTHIAZIDE\VALSARTAN
     Indication: PRODUCT USED FOR UNKNOWN INDICATION
     Route: 065

REACTIONS (6)
  - Skin discolouration [Unknown]
  - Peripheral swelling [Unknown]
  - Breast cancer [Not Recovered/Not Resolved]
  - Oedema [Unknown]
  - Pruritus generalised [Unknown]
  - Sleep disorder [Unknown]
